FAERS Safety Report 7295086-3 (Version None)
Quarter: 2011Q1

REPORT INFORMATION
  Report Type: 
  Country: None (occurrence: None)
  Receive Date: 20110211
  Receipt Date: 20110211
  Transmission Date: 20110831
  Serious: Yes (Hospitalization)
  Sender: FDA-Public Use
  Company Number: None

PATIENT
  Sex: Female
  Weight: 109.7705 kg

DRUGS (2)
  1. SIMVASTATIN [Suspect]
     Dosage: SIMVASTATIN 80MG ONE DAILY PO
     Route: 048
     Dates: start: 20080901, end: 20110101
  2. NIACIN [Suspect]

REACTIONS (1)
  - RHABDOMYOLYSIS [None]
